FAERS Safety Report 9996326 (Version 4)
Quarter: 2014Q2

REPORT INFORMATION
  Report Type: Spontaneous
  Country: DK (occurrence: DK)
  Receive Date: 20140311
  Receipt Date: 20140410
  Transmission Date: 20141212
  Serious: Yes (Death, Life-Threatening, Hospitalization, Other)
  Sender: FDA-Public Use
  Company Number: DK-PFIZER INC-2014068787

PATIENT
  Age: 68 Year
  Sex: Male

DRUGS (38)
  1. RAMIPRIL [Suspect]
     Indication: CARDIAC FAILURE
     Dosage: 25 MG, 2X/DAY
     Route: 048
     Dates: start: 20121029, end: 20130125
  2. RAMIPRIL [Suspect]
     Dosage: 2.5 MG, DAILY
     Route: 048
     Dates: start: 20130221
  3. SPIRON [Suspect]
     Indication: CARDIAC FAILURE
     Dosage: 25 MG, 1X/DAY
     Route: 065
     Dates: start: 20120831, end: 20130125
  4. MAREVAN [Suspect]
     Indication: ATRIAL FIBRILLATION
     Dosage: UNK
     Route: 048
     Dates: start: 20120722
  5. MAREVAN [Suspect]
     Dosage: UNK, AS NEEDED
     Route: 048
     Dates: start: 20121012
  6. MAREVAN [Suspect]
     Dosage: 25 MG, AS NEEDED
     Route: 048
     Dates: start: 20130225, end: 20130320
  7. WARFARIN [Suspect]
     Indication: ATRIAL FIBRILLATION
     Dosage: UNK
     Dates: start: 20080403
  8. WARFARIN [Suspect]
     Dosage: UNK
     Route: 048
     Dates: start: 20120722
  9. AMARYL [Concomitant]
     Indication: DIABETES MELLITUS
     Dosage: 3 MG, 2X/DAY
     Route: 065
     Dates: start: 20000814
  10. ASPIRIN [Concomitant]
     Indication: ACUTE MYOCARDIAL INFARCTION
     Dosage: 75 MG, 1X/DAY
     Route: 065
     Dates: start: 20000814, end: 20120620
  11. BURINEX [Concomitant]
     Indication: CARDIAC FAILURE
     Dosage: 1 MG, 2X/DAY
     Route: 048
     Dates: start: 20120917
  12. BYETTA [Concomitant]
     Indication: DIABETES MELLITUS
     Dosage: 10 MG, 2X/DAY
     Route: 058
     Dates: start: 20080221, end: 20130419
  13. CARVEDILOL [Concomitant]
     Indication: CARDIAC FAILURE
     Dosage: 12.5 MG, 2X/DAY
     Route: 048
     Dates: start: 20120708
  14. CARVEDILOL [Concomitant]
     Dosage: 12.5 MG, 2X/DAY
     Route: 048
     Dates: start: 20130125
  15. CITALOPRAM [Concomitant]
     Indication: DEPRESSION
     Dosage: 20 MG, 1X/DAY
     Route: 048
     Dates: start: 20130219, end: 20130408
  16. DIGOXIN [Concomitant]
     Indication: VENTRICULAR TACHYCARDIA
     Dosage: 6.25 MG, 1X/DAY
     Route: 065
     Dates: start: 20121115
  17. DIMITONE [Concomitant]
     Indication: MYOCARDIAL ISCHAEMIA
     Dosage: 12.5 MG, 2X/DAY
     Route: 048
     Dates: start: 20080405, end: 20120619
  18. DIMITONE [Concomitant]
     Indication: VENTRICULAR TACHYCARDIA
     Dosage: 6.25 MG, 1X/DAY
     Route: 048
     Dates: start: 20080405, end: 20120619
  19. FUROSEMIDE [Concomitant]
     Indication: CARDIAC FAILURE
     Dosage: 80 MG, 3X/DAY
     Route: 048
     Dates: start: 20120721, end: 20120806
  20. FUROSEMIDE [Concomitant]
     Dosage: 30 MG, 2X/DAY
     Route: 048
     Dates: start: 20120809
  21. ISODUR [Concomitant]
     Indication: CARDIAC FAILURE
     Dosage: 100 MG, 2X/DAY
     Route: 048
     Dates: start: 20120210, end: 20120808
  22. ISODUR [Concomitant]
     Dosage: 30 MG, 2X/DAY
     Dates: start: 20120809
  23. LASIX RETARD [Concomitant]
     Indication: CARDIAC FAILURE
     Dosage: 180 MG, 1X/DAY
     Route: 048
     Dates: start: 20080406, end: 20120614
  24. METFORMIN [Concomitant]
     Indication: DIABETES MELLITUS
     Dosage: 1000 MG, 2X/DAY
     Route: 048
     Dates: start: 20040714
  25. METFORMIN [Concomitant]
     Dosage: 1000 MG, 2X/DAY
     Route: 048
     Dates: start: 20120710
  26. NORVASC [Concomitant]
     Indication: HYPERTENSION
     Dosage: 10 MG, 1X/DAY
     Route: 065
     Dates: start: 20020527
  27. ODRIK [Concomitant]
     Indication: CARDIAC FAILURE
     Dosage: 0.5 MG, 1X/DAY
     Route: 048
     Dates: start: 20120724
  28. PANTOPRAZOLE [Concomitant]
     Indication: GASTRIC ULCER
     Dosage: 20 MG, 1X/DAY
     Route: 048
     Dates: start: 20130416
  29. PANTOPRAZOLE [Concomitant]
     Dosage: 40 MG, 2X/DAY
     Route: 048
     Dates: start: 20120620
  30. PANTOPRAZOLE [Concomitant]
     Dosage: 20 MG, 1X/DAY
     Route: 048
     Dates: start: 20121025, end: 20130415
  31. SELOZOK [Concomitant]
     Indication: CARDIAC FAILURE
     Dosage: 40 MG, 2X/DAY
     Route: 048
     Dates: start: 20120619
  32. SELOZOK [Concomitant]
     Dosage: 50 DF, 2X/DAY
     Route: 048
     Dates: start: 20120719
  33. SPIRONOLACTONE [Concomitant]
     Indication: CARDIAC FAILURE
     Dosage: 12.5 MG, 1X/DAY
     Route: 065
     Dates: start: 20120722, end: 20120830
  34. VENLAFAXINE [Concomitant]
     Indication: DEPRESSION
     Dosage: 75 MG, 1X/DAY
     Route: 065
     Dates: start: 20130409, end: 20130419
  35. ZARATOR [Concomitant]
     Indication: HYPERCHOLESTEROLAEMIA
     Dosage: 20 MG, 1X/DAY
     Route: 048
     Dates: start: 20120616, end: 20130419
  36. ZARATOR [Concomitant]
     Dosage: 40 MG, 1X/DAY
     Route: 048
     Dates: start: 20030731
  37. ZAROXOLYN [Concomitant]
     Indication: CARDIAC FAILURE
     Dosage: 2.5 MG, AS NEEDED
     Route: 048
     Dates: start: 20120725
  38. TRANDOLAPRIL [Concomitant]
     Dosage: 20 MG, 1X/DAY
     Route: 048
     Dates: start: 20120125

REACTIONS (23)
  - Acute myocardial infarction [Fatal]
  - Arteriosclerosis [Not Recovered/Not Resolved]
  - Renal failure [Recovered/Resolved]
  - Hypotension [Recovered/Resolved]
  - Haematemesis [Recovered/Resolved]
  - Coagulation factor increased [Recovered/Resolved]
  - Infected skin ulcer [Recovered/Resolved]
  - Pulmonary oedema [Recovered/Resolved]
  - Cardiac failure [Recovered/Resolved]
  - International normalised ratio increased [Recovered/Resolved]
  - Abdominal pain upper [Recovered/Resolved]
  - Aortic valve stenosis [Recovered/Resolved]
  - Syncope [Not Recovered/Not Resolved]
  - Hyperkalaemia [Recovered/Resolved]
  - Anaemia [Recovered/Resolved]
  - Peripheral arterial occlusive disease [Unknown]
  - Dyspnoea [Unknown]
  - Crepitations [Unknown]
  - Tachycardia [Unknown]
  - Oedema peripheral [Unknown]
  - Cold sweat [Unknown]
  - Fatigue [Unknown]
  - Weight increased [Unknown]
